FAERS Safety Report 4761990-0 (Version None)
Quarter: 2005Q3

REPORT INFORMATION
  Report Type: 
  Country: None (occurrence: None)
  Receive Date: 20050831
  Receipt Date: 20050609
  Transmission Date: 20060218
  Serious: No
  Sender: FDA-Public Use
  Company Number: PHEH2005US06577

PATIENT
  Age: 83 Year
  Sex: Female

DRUGS (1)
  1. ENABLEX [Suspect]
     Indication: HYPERTONIC BLADDER
     Dosage: 15 MG, QHS,
     Dates: start: 20050607, end: 20050608

REACTIONS (2)
  - NOCTURIA [None]
  - POLLAKIURIA [None]
